FAERS Safety Report 5115113-9 (Version None)
Quarter: 2006Q3

REPORT INFORMATION
  Report Type: 
  Country: None (occurrence: None)
  Receive Date: 20060925
  Receipt Date: 20060925
  Transmission Date: 20061208
  Serious: Yes (Other)
  Sender: FDA-Public Use
  Company Number: None

PATIENT
  Age: 25 Year
  Sex: Female
  Weight: 32.4775 kg

DRUGS (1)
  1. VISTARIL [Suspect]
     Indication: ANXIETY
     Dosage: 50    BID  PRN   PO
     Route: 048
     Dates: start: 20060909, end: 20060912

REACTIONS (3)
  - CATATONIA [None]
  - CONFUSIONAL STATE [None]
  - LOSS OF CONSCIOUSNESS [None]
